FAERS Safety Report 11077341 (Version 1)
Quarter: 2015Q2

REPORT INFORMATION
  Report Type: Spontaneous
  Country: CA (occurrence: CA)
  Receive Date: 20150429
  Receipt Date: 20150429
  Transmission Date: 20150821
  Serious: Yes (Other)
  Sender: FDA-Public Use
  Company Number: CA-ROCHE-1568748

PATIENT
  Age: 58 Year
  Sex: Male

DRUGS (2)
  1. ENTERIC COATED ASA [Concomitant]
     Active Substance: ASPIRIN
     Route: 065
  2. TNKASE [Suspect]
     Active Substance: ISOPROPYL ALCOHOL\TENECTEPLASE
     Indication: ACUTE MYOCARDIAL INFARCTION
     Route: 042

REACTIONS (1)
  - Haemarthrosis [Recovered/Resolved with Sequelae]
